FAERS Safety Report 9301907 (Version 4)
Quarter: 2014Q3

REPORT INFORMATION
  Report Type: Spontaneous
  Country: US (occurrence: US)
  Receive Date: 20130521
  Receipt Date: 20140724
  Transmission Date: 20150326
  Serious: No
  Sender: FDA-Public Use
  Company Number: US-ASTRAZENECA-2013SE32516

PATIENT
  Age: 78 Year
  Sex: Female
  Weight: 58.1 kg

DRUGS (3)
  1. CELEXA [Concomitant]
     Active Substance: CITALOPRAM HYDROBROMIDE
  2. CELEBREX [Suspect]
     Active Substance: CELECOXIB
     Indication: DEPRESSION
     Route: 065
     Dates: start: 20130422, end: 20130426
  3. SEROQUEL XR [Suspect]
     Active Substance: QUETIAPINE FUMARATE
     Indication: DEPRESSION
     Route: 048
     Dates: start: 20130422, end: 20130425

REACTIONS (8)
  - Musculoskeletal disorder [Unknown]
  - Pain in extremity [Not Recovered/Not Resolved]
  - Gait disturbance [Unknown]
  - Joint stiffness [Unknown]
  - Multiple allergies [Unknown]
  - Limb discomfort [Unknown]
  - Confusional state [Recovered/Resolved]
  - Peripheral swelling [Not Recovered/Not Resolved]

NARRATIVE: CASE EVENT DATE: 2013
